FAERS Safety Report 8985473 (Version 1)
Quarter: 2012Q4

REPORT INFORMATION
  Report Type: 
  Country: FR (occurrence: FR)
  Receive Date: 20121226
  Receipt Date: 20121226
  Transmission Date: 20130627
  Serious: Yes (Hospitalization)
  Sender: FDA-Public Use
  Company Number: FR-B.I. PHARMACEUTICALS,INC./RIDGEFIELD-2012-FF-02017FF

PATIENT
  Age: 87 Year
  Sex: Female

DRUGS (1)
  1. PRADAXA [Suspect]
     Dosage: 220 mg
     Route: 048
     Dates: start: 20120924, end: 20121017

REACTIONS (6)
  - Anaemia [Not Recovered/Not Resolved]
  - International normalised ratio increased [Recovered/Resolved]
  - Prothrombin time shortened [Not Recovered/Not Resolved]
  - Activated partial thromboplastin time prolonged [Not Recovered/Not Resolved]
  - Prothrombin level decreased [Unknown]
  - Coagulation factor V level decreased [Unknown]
